FAERS Safety Report 10463442 (Version 1)
Quarter: 2014Q3

REPORT INFORMATION
  Report Type: Spontaneous
  Country: US (occurrence: None)
  Receive Date: 20140918
  Receipt Date: 20140918
  Transmission Date: 20150326
  Serious: Yes (Hospitalization)
  Sender: FDA-Public Use
  Company Number: None

PATIENT
  Age: 66 Year
  Sex: Male
  Weight: 76 kg

DRUGS (1)
  1. DABIGATRAN [Suspect]
     Active Substance: DABIGATRAN
     Indication: ATRIAL FLUTTER
     Route: 048
     Dates: start: 20140117, end: 20140611

REACTIONS (4)
  - Haemoptysis [None]
  - Hypoxia [None]
  - Lung infection [None]
  - Haemorrhage [None]

NARRATIVE: CASE EVENT DATE: 20140611
